FAERS Safety Report 15809346 (Version 2)
Quarter: 2019Q1

REPORT INFORMATION
  Report Type: Report from Study
  Country: None (occurrence: US)
  Receive Date: 20190110
  Receipt Date: 20190213
  Transmission Date: 20190417
  Serious: Yes (Other)
  Sender: FDA-Public Use
  Company Number: US-ABBVIE-18K-163-2583342-00

PATIENT
  Sex: Female
  Weight: 61.29 kg

DRUGS (3)
  1. PENICILLIN NOS [Concomitant]
     Active Substance: PENICILLIN
     Indication: PRODUCT USED FOR UNKNOWN INDICATION
  2. METHOTREXATE. [Concomitant]
     Active Substance: METHOTREXATE
     Indication: PRODUCT USED FOR UNKNOWN INDICATION
  3. HUMIRA [Suspect]
     Active Substance: ADALIMUMAB
     Indication: RHEUMATOID ARTHRITIS
     Route: 058
     Dates: start: 201506, end: 20181107

REACTIONS (6)
  - Urinary tract infection [Not Recovered/Not Resolved]
  - Immunodeficiency [Unknown]
  - Abdominal distension [Not Recovered/Not Resolved]
  - Device loosening [Recovered/Resolved]
  - Dental implantation [Unknown]
  - Bone graft [Unknown]

NARRATIVE: CASE EVENT DATE: 2018
